FAERS Safety Report 25331417 (Version 1)
Quarter: 2025Q2

REPORT INFORMATION
  Report Type: Spontaneous
  Country: US (occurrence: US)
  Receive Date: 20250519
  Receipt Date: 20250519
  Transmission Date: 20250717
  Serious: Yes (Hospitalization, Other)
  Sender: PFIZER
  Company Number: US-PFIZER INC-PV202500057711

PATIENT
  Age: 11 Year
  Sex: Male

DRUGS (31)
  1. TOFACITINIB [Suspect]
     Active Substance: TOFACITINIB
     Dates: start: 202007
  2. TOFACITINIB [Suspect]
     Active Substance: TOFACITINIB
     Dosage: BID
     Dates: start: 20210901
  3. METHYLPREDNISOLONE SODIUM SUCCINATE [Suspect]
     Active Substance: METHYLPREDNISOLONE SODIUM SUCCINATE
     Dosage: 500 MG, WEEKLY
     Route: 042
  4. METHYLPREDNISOLONE SODIUM SUCCINATE [Suspect]
     Active Substance: METHYLPREDNISOLONE SODIUM SUCCINATE
     Dates: start: 201806, end: 201809
  5. JAKAFI [Suspect]
     Active Substance: RUXOLITINIB
     Dosage: 10 MILLIGRAM, BID
  6. JAKAFI [Suspect]
     Active Substance: RUXOLITINIB
     Dosage: 5 MILLIGRAM, BID
     Dates: start: 202112
  7. CANAKINUMAB [Suspect]
     Active Substance: CANAKINUMAB
     Indication: Still^s disease
     Dosage: 8MG/KG QMO
     Dates: start: 201510, end: 201605
  8. TACROLIMUS [Suspect]
     Active Substance: TACROLIMUS
     Dates: start: 20160524
  9. TACROLIMUS [Suspect]
     Active Substance: TACROLIMUS
     Dates: start: 201606
  10. TACROLIMUS [Suspect]
     Active Substance: TACROLIMUS
     Dates: start: 201904
  11. PREDNISOLONE [Suspect]
     Active Substance: PREDNISOLONE
     Dates: end: 2016
  12. PREDNISOLONE [Suspect]
     Active Substance: PREDNISOLONE
     Dates: end: 2019
  13. PREDNISOLONE [Suspect]
     Active Substance: PREDNISOLONE
     Dosage: 9 MG, QD
  14. PREDNISOLONE [Suspect]
     Active Substance: PREDNISOLONE
     Dates: start: 202007
  15. PREDNISOLONE [Suspect]
     Active Substance: PREDNISOLONE
     Dosage: 9 MILLIGRAM, QD
     Dates: start: 20210901
  16. PREDNISOLONE [Suspect]
     Active Substance: PREDNISOLONE
     Dosage: 6 MILLIGRAM, QD
     Dates: start: 20211022
  17. PREDNISOLONE [Suspect]
     Active Substance: PREDNISOLONE
     Dosage: 9 MILLIGRAM, QD
  18. ANAKINRA [Suspect]
     Active Substance: ANAKINRA
  19. ANAKINRA [Suspect]
     Active Substance: ANAKINRA
     Dates: start: 2016
  20. ANAKINRA [Suspect]
     Active Substance: ANAKINRA
     Dosage: 100 MILLIGRAM, BID
     Dates: start: 201712
  21. ANAKINRA [Suspect]
     Active Substance: ANAKINRA
     Dosage: BID
     Dates: start: 201904
  22. ANAKINRA [Suspect]
     Active Substance: ANAKINRA
     Dosage: QD
     Dates: start: 202104
  23. ANAKINRA [Suspect]
     Active Substance: ANAKINRA
     Dosage: BID
     Dates: start: 20211022
  24. ANAKINRA [Suspect]
     Active Substance: ANAKINRA
     Dosage: 100 MILLIGRAM, BID
  25. PENTAMIDINE ISETHIONATE [Suspect]
     Active Substance: PENTAMIDINE ISETHIONATE
     Dates: start: 201712
  26. PENTAMIDINE ISETHIONATE [Suspect]
     Active Substance: PENTAMIDINE ISETHIONATE
     Route: 042
  27. ATOVAQUONE [Suspect]
     Active Substance: ATOVAQUONE
  28. METHOTREXATE SODIUM [Concomitant]
     Active Substance: METHOTREXATE SODIUM
  29. PREDNISONE [Concomitant]
     Active Substance: PREDNISONE
  30. ACTEMRA [Concomitant]
     Active Substance: TOCILIZUMAB
  31. CYCLOPHOSPHAMIDE\DOXORUBICIN\PREDNISONE\VINCRISTINE [Concomitant]
     Active Substance: CYCLOPHOSPHAMIDE\DOXORUBICIN\PREDNISONE\VINCRISTINE
     Dates: start: 201508

REACTIONS (16)
  - Haemophagocytic lymphohistiocytosis [Unknown]
  - Haematochezia [Unknown]
  - Inflammatory bowel disease [Unknown]
  - Colitis [Unknown]
  - Disease progression [Not Recovered/Not Resolved]
  - Drug ineffective [Unknown]
  - Dermatitis atopic [Not Recovered/Not Resolved]
  - Pyrexia [Unknown]
  - Rash [Unknown]
  - Bronchial atresia [Unknown]
  - Red blood cell sedimentation rate increased [Unknown]
  - Condition aggravated [Unknown]
  - Gastrointestinal disorder [Unknown]
  - Dactylitis [Unknown]
  - Viral infection [Unknown]
  - Hyperferritinaemia [Unknown]

NARRATIVE: CASE EVENT DATE: 20151201
